FAERS Safety Report 7164254-3 (Version None)
Quarter: 2010Q4

REPORT INFORMATION
  Report Type: 
  Country: None (occurrence: None)
  Receive Date: 20101215
  Receipt Date: 20101208
  Transmission Date: 20110411
  Serious: Yes (Death, Hospitalization)
  Sender: FDA-Public Use
  Company Number: PL-BRISTOL-MYERS SQUIBB COMPANY-15148273

PATIENT
  Age: 56 Year
  Sex: Male
  Weight: 63 kg

DRUGS (7)
  1. PACLITAXEL [Suspect]
     Indication: NON-SMALL CELL LUNG CANCER
     Route: 042
     Dates: start: 20090210, end: 20090210
  2. CARBOPLATIN [Suspect]
     Indication: NON-SMALL CELL LUNG CANCER
     Route: 042
     Dates: start: 20090210, end: 20090210
  3. POLPRAZOL [Concomitant]
  4. DHC CONTINUS [Concomitant]
  5. MEGESTROL ACETATE [Concomitant]
     Dates: start: 20090217
  6. KETONAL [Concomitant]
     Dates: start: 20090217
  7. CETIRIZINE HCL [Concomitant]
     Dates: start: 20090217, end: 20090221

REACTIONS (1)
  - RENAL FAILURE [None]
